FAERS Safety Report 24702702 (Version 1)
Quarter: 2024Q4

REPORT INFORMATION
  Report Type: Spontaneous
  Country: US (occurrence: None)
  Receive Date: 20241205
  Receipt Date: 20241205
  Transmission Date: 20250115
  Serious: No
  Sender: Public
  Company Number: None

PATIENT
  Age: 34 Year
  Sex: Male
  Weight: 192 kg

DRUGS (1)
  1. LOXAPINE [Suspect]
     Active Substance: LOXAPINE
     Dosage: FREQUENCY : AT BEDTIME;?
     Route: 048
     Dates: start: 20201007, end: 20201009

REACTIONS (1)
  - Angioedema [None]

NARRATIVE: CASE EVENT DATE: 20201009
